FAERS Safety Report 12202155 (Version 2)
Quarter: 2016Q1

REPORT INFORMATION
  Report Type: Spontaneous
  Country: VN (occurrence: VN)
  Receive Date: 20160322
  Receipt Date: 20160329
  Transmission Date: 20160526
  Serious: Yes (Life-Threatening)
  Sender: FDA-Public Use
  Company Number: VN-GE HEALTHCARE MEDICAL DIAGNOSTICS-OMPQ-PR-1603S-0334

PATIENT
  Age: 25 Year
  Sex: Female
  Weight: 49 kg

DRUGS (4)
  1. PANADOL [Concomitant]
     Active Substance: ACETAMINOPHEN
  2. OMNIPAQUE [Suspect]
     Active Substance: IOHEXOL
     Indication: CYSTITIS
     Route: 042
     Dates: start: 20160314, end: 20160314
  3. OLECIN [Suspect]
     Active Substance: LEVOFLOXACIN
  4. OMNIPAQUE [Suspect]
     Active Substance: IOHEXOL
     Indication: DIAGNOSTIC PROCEDURE

REACTIONS (7)
  - Dyspnoea [Recovering/Resolving]
  - Pyrexia [Recovering/Resolving]
  - Panic reaction [Recovering/Resolving]
  - Mucosal discolouration [Recovering/Resolving]
  - Pallor [Recovering/Resolving]
  - Hyperhidrosis [Recovering/Resolving]
  - Heart rate increased [Recovering/Resolving]

NARRATIVE: CASE EVENT DATE: 20160314
